FAERS Safety Report 13815334 (Version 1)
Quarter: 2017Q3

REPORT INFORMATION
  Report Type: Spontaneous
  Country: US (occurrence: US)
  Receive Date: 20170731
  Receipt Date: 20170731
  Transmission Date: 20171127
  Serious: Yes (Other)
  Sender: FDA-Public Use
  Company Number: US-PFIZER INC-2017328594

PATIENT
  Age: 55 Year
  Sex: Female
  Weight: 104.3 kg

DRUGS (3)
  1. LYRICA [Suspect]
     Active Substance: PREGABALIN
     Indication: DIABETIC NEUROPATHY
     Dosage: 25 MG, 2X/DAY
     Dates: start: 2016
  2. LYRICA [Suspect]
     Active Substance: PREGABALIN
     Indication: FIBROMYALGIA
     Dosage: 200 MG, 2X/DAY
  3. OXYCODONE [Concomitant]
     Active Substance: OXYCODONE
     Indication: PAIN
     Dosage: 10 MG, EVERY 6-8 HOURS
     Route: 048
     Dates: start: 201603

REACTIONS (11)
  - Sensory loss [Unknown]
  - Confusional state [Unknown]
  - Depression [Unknown]
  - Burns third degree [Unknown]
  - Fatigue [Unknown]
  - Condition aggravated [Not Recovered/Not Resolved]
  - Influenza [Unknown]
  - Drug ineffective [Not Recovered/Not Resolved]
  - Impaired work ability [Unknown]
  - Pneumonia [Unknown]
  - Weight increased [Unknown]

NARRATIVE: CASE EVENT DATE: 201701
